FAERS Safety Report 8583587 (Version 2)
Quarter: 2013Q1

REPORT INFORMATION
  Report Type: Spontaneous
  Country: US (occurrence: US)
  Receive Date: 20120529
  Receipt Date: 20130312
  Transmission Date: 20140127
  Serious: Yes (Hospitalization)
  Sender: FDA-Public Use
  Company Number: US-BAYER-2012-051633

PATIENT
  Age: 22 Year
  Sex: Female
  Weight: 65.76 kg

DRUGS (22)
  1. BEYAZ [Suspect]
     Indication: CONTRACEPTION
     Dosage: UNK
     Dates: start: 20110824
  2. BEYAZ [Suspect]
     Indication: POLYCYSTIC OVARIES
  3. YAZ [Suspect]
     Indication: CONTRACEPTION
  4. HYDROXYCHLOROQUINE [Concomitant]
     Dosage: 200 MG,MG/2 TABLETS DAILY, UNK
     Route: 048
  5. TRAMADOL [Concomitant]
     Dosage: 50 MG, 1 TABLET Q (EVERY) 6 HOURS PRN
     Route: 048
  6. CYCLOBENZAPRINE [Concomitant]
     Dosage: 10 MG, TID
     Route: 048
  7. CEPHALEXIN [Concomitant]
     Dosage: 500 MG, UNK
  8. FLAGYL [Concomitant]
  9. CIPRO [Concomitant]
  10. PREDNISONE [Concomitant]
     Indication: RASH
     Dosage: 20 MG, UNK
     Dates: start: 2011
  11. ROXICODONE [Concomitant]
  12. PLAQUERIL [Concomitant]
     Indication: ARTHRALGIA
     Dosage: UNK
     Dates: start: 2008, end: 2012
  13. LOESTRIN [Concomitant]
     Indication: CONTRACEPTION
     Dosage: UNK
     Dates: start: 2006, end: 2011
  14. ORTHO EVRA [Concomitant]
     Indication: CONTRACEPTION
     Dosage: UNK
     Dates: start: 2006, end: 2008
  15. ULTRAM [Concomitant]
     Indication: PAIN
     Dosage: UNK
     Dates: start: 201108
  16. KEFLEX [Concomitant]
     Dosage: UNK
     Dates: start: 201108
  17. FLEXERIL [Concomitant]
     Dosage: UNK
     Dates: start: 201108
  18. CETIRIZINE HYDROCHLORIDE [Concomitant]
     Indication: RASH PRURITIC
     Dosage: UNK
     Dates: start: 201110
  19. ZANTAC [Concomitant]
     Dosage: UNK
     Dates: start: 201110
  20. HYDROCODONE W/APAP [Concomitant]
     Dosage: 5MG/500MG
  21. FLUCONAZOLE [Concomitant]
     Dosage: 150 MG, UNK
  22. CLOTRIMAZOLE W/BETAMETHASONE DIPROPIONAT [Concomitant]

REACTIONS (5)
  - Pulmonary embolism [Recovered/Resolved]
  - Pain in extremity [None]
  - Back pain [Recovered/Resolved]
  - Dyspnoea [Recovered/Resolved]
  - Rash [None]
